FAERS Safety Report 23520716 (Version 3)
Quarter: 2024Q1

REPORT INFORMATION
  Report Type: Report from Study
  Country: ES (occurrence: ES)
  Receive Date: 20240214
  Receipt Date: 20240301
  Transmission Date: 20240409
  Serious: Yes (Hospitalization)
  Sender: FDA-Public Use
  Company Number: ES-JNJFOC-20240222582

PATIENT
  Age: 70 Year
  Sex: Male
  Weight: 78.2 kg

DRUGS (13)
  1. VELCADE [Suspect]
     Active Substance: BORTEZOMIB
     Indication: Primary amyloidosis
     Dosage: QW
     Route: 058
     Dates: start: 20240110, end: 20240123
  2. DARZALEX [Suspect]
     Active Substance: DARATUMUMAB
     Indication: Product used for unknown indication
     Route: 065
     Dates: start: 20240110, end: 20240123
  3. CYCLOPHOSPHAMIDE [Suspect]
     Active Substance: CYCLOPHOSPHAMIDE
     Indication: Product used for unknown indication
     Route: 065
     Dates: start: 20240110, end: 20240123
  4. OMEPRAZOLE [Concomitant]
     Active Substance: OMEPRAZOLE
  5. JARDIANCE [Concomitant]
     Active Substance: EMPAGLIFLOZIN
  6. IVABRADINE [Concomitant]
     Active Substance: IVABRADINE
  7. ALDACTONE [Concomitant]
     Active Substance: SPIRONOLACTONE
  8. ALPRAZOLAM [Concomitant]
     Active Substance: ALPRAZOLAM
  9. LORMETAZEPAM [Concomitant]
     Active Substance: LORMETAZEPAM
  10. NEXIUM I.V. [Concomitant]
     Active Substance: ESOMEPRAZOLE SODIUM
  11. ACYCLOVIR [Concomitant]
     Active Substance: ACYCLOVIR
  12. ZOLPIDEM [Concomitant]
     Active Substance: ZOLPIDEM TARTRATE
  13. DEXAMETHASONE [Concomitant]
     Active Substance: DEXAMETHASONE
     Dates: start: 20240110, end: 20240123

REACTIONS (2)
  - Cardiac failure [Recovered/Resolved]
  - Off label use [Unknown]

NARRATIVE: CASE EVENT DATE: 20240126
